FAERS Safety Report 16527429 (Version 2)
Quarter: 2019Q3

REPORT INFORMATION
  Report Type: Other
  Country: US (occurrence: US)
  Receive Date: 20190704
  Receipt Date: 20190716
  Transmission Date: 20191004
  Serious: Yes (Other)
  Sender: FDA-Public Use
  Company Number: US-AIR PRODUCTS AND CHEMICALS, INC. -2070365

PATIENT
  Age: 27 Year
  Sex: Male

DRUGS (2)
  1. OXYGEN. [Suspect]
     Active Substance: OXYGEN
     Indication: POST-TRAUMATIC STRESS DISORDER
  2. OXYGEN. [Suspect]
     Active Substance: OXYGEN
     Indication: CRANIOCEREBRAL INJURY

REACTIONS (2)
  - Memory impairment [None]
  - Condition aggravated [None]
